FAERS Safety Report 8833782 (Version 1)
Quarter: 2012Q4

REPORT INFORMATION
  Report Type: Spontaneous
  Country: GB (occurrence: None)
  Receive Date: 20121005
  Receipt Date: 20121005
  Transmission Date: 20130627
  Serious: Yes (Hospitalization)
  Sender: FDA-Public Use
  Company Number: 2012-01425

PATIENT
  Age: 67 Year
  Sex: Male
  Weight: 86 kg

DRUGS (7)
  1. SIMVASTATIN [Suspect]
     Indication: DRUG USE FOR UNKNOWN INDICATION
     Route: 048
     Dates: start: 2009
  2. LISINOPRIL [Suspect]
     Indication: DRUG USE FOR UNKNOWN INDICATION
     Route: 048
     Dates: start: 2009
  3. DOCETAXEL [Suspect]
     Indication: DRUG USE FOR UNKNOWN INDICATION
     Route: 042
     Dates: start: 20120713, end: 20120824
  4. MIRTAZAPINE (UNKNOWN) [Suspect]
     Indication: DRUG USE FOR UNKNOWN INDICATION
     Route: 048
     Dates: start: 20120611
  5. PREDNISOLONE (UNKNOWN) [Suspect]
     Indication: DRUG USE FOR UNKNOWN INDICATION
     Route: 048
     Dates: start: 20120713
  6. GOSERELIN + GOSERELIN ACETATE (ZOLADEX) [Concomitant]
  7. ZOLEDRONIC ACID [Concomitant]

REACTIONS (6)
  - Pyrexia [None]
  - Chills [None]
  - Haematocrit decreased [None]
  - Lymphocyte count decreased [None]
  - Blood albumin decreased [None]
  - Lower respiratory tract infection [None]
